FAERS Safety Report 6880206-2 (Version None)
Quarter: 2010Q3

REPORT INFORMATION
  Report Type: 
  Country: None (occurrence: None)
  Receive Date: 20100728
  Receipt Date: 20100520
  Transmission Date: 20110219
  Serious: Yes (Other)
  Sender: FDA-Public Use
  Company Number: US-BRISTOL-MYERS SQUIBB COMPANY-15115033

PATIENT

DRUGS (2)
  1. SPRYCEL [Suspect]
  2. TASIGNA [Suspect]
     Dosage: NO OF DOSE=3

REACTIONS (1)
  - PANCREATITIS [None]
